FAERS Safety Report 12455518 (Version 1)
Quarter: 2016Q2

REPORT INFORMATION
  Report Type: Report from Study
  Country: US (occurrence: US)
  Receive Date: 20160610
  Receipt Date: 20160610
  Transmission Date: 20160815
  Serious: No
  Sender: FDA-Public Use
  Company Number: US-MDT-ADR-2016-01050

PATIENT
  Age: 59 Year
  Sex: Male

DRUGS (5)
  1. GABAPENTIN. [Suspect]
     Active Substance: GABAPENTIN
  2. BACLOFEN. [Suspect]
     Active Substance: BACLOFEN
     Dosage: 17.27MCG/DAY
     Route: 037
     Dates: start: 20160224
  3. MORPHINE [Suspect]
     Active Substance: MORPHINE
     Dosage: 0.2883 MG/DAY
     Route: 037
  4. MORPHINE [Suspect]
     Active Substance: MORPHINE
     Dosage: 0.3455MG/DAY
     Route: 037
     Dates: start: 20160224
  5. BACLOFEN. [Suspect]
     Active Substance: BACLOFEN
     Dosage: 14.42 MCG/DAY
     Route: 037

REACTIONS (2)
  - Sudden onset of sleep [Not Recovered/Not Resolved]
  - Adverse drug reaction [Not Recovered/Not Resolved]
